FAERS Safety Report 8485504-7 (Version None)
Quarter: 2012Q3

REPORT INFORMATION
  Report Type: 
  Country: None (occurrence: None)
  Receive Date: 20120703
  Receipt Date: 20120628
  Transmission Date: 20120928
  Serious: Yes (Death)
  Sender: FDA-Public Use
  Company Number: JO-PFIZER INC-2010158635

PATIENT
  Age: 76 Year
  Sex: Female

DRUGS (2)
  1. TIGECYCLINE [Suspect]
     Indication: PERITONITIS
     Dosage: 100 MG, 1X/DAY
     Route: 042
  2. TIGECYCLINE [Suspect]
     Dosage: UNK

REACTIONS (2)
  - SEPTIC SHOCK [None]
  - PERITONITIS [None]
